FAERS Safety Report 23189415 (Version 2)
Quarter: 2023Q4

REPORT INFORMATION
  Report Type: Spontaneous
  Country: FR (occurrence: FR)
  Receive Date: 20231116
  Receipt Date: 20231123
  Transmission Date: 20240109
  Serious: Yes (Hospitalization)
  Sender: FDA-Public Use
  Company Number: FR-TEVA-2023-FR-2944527

PATIENT
  Age: 34 Year
  Sex: Female

DRUGS (8)
  1. ACETAMINOPHEN [Suspect]
     Active Substance: ACETAMINOPHEN
     Indication: Procedural headache
     Dosage: REGULAR ADMINISTRATION
     Route: 065
  2. ACETAMINOPHEN [Suspect]
     Active Substance: ACETAMINOPHEN
     Indication: Neck pain
  3. TRAMADOL [Suspect]
     Active Substance: TRAMADOL\TRAMADOL HYDROCHLORIDE
     Indication: Procedural headache
     Dosage: REGULAR ADMINISTRATION
     Route: 065
  4. TRAMADOL [Suspect]
     Active Substance: TRAMADOL\TRAMADOL HYDROCHLORIDE
     Indication: Neck pain
  5. NEFOPAM [Suspect]
     Active Substance: NEFOPAM
     Indication: Procedural headache
     Dosage: REGULAR ADMINISTRATION
     Route: 065
  6. NEFOPAM [Suspect]
     Active Substance: NEFOPAM
     Indication: Neck pain
  7. NEOSTIGMINE [Suspect]
     Active Substance: NEOSTIGMINE
     Indication: Procedural headache
     Dosage: 1.5 MG
     Route: 042
  8. ATROPINE [Suspect]
     Active Substance: ATROPINE\ATROPINE SULFATE
     Indication: Procedural headache
     Dosage: OVER 15 MINUTES, 0.75 MG
     Route: 042

REACTIONS (2)
  - Reversible cerebral vasoconstriction syndrome [Recovered/Resolved]
  - Drug ineffective [Unknown]
